FAERS Safety Report 15066204 (Version 1)
Quarter: 2018Q2

REPORT INFORMATION
  Report Type: Other
  Country: GB (occurrence: GB)
  Receive Date: 20180626
  Receipt Date: 20180626
  Transmission Date: 20180711
  Serious: Yes (Other)
  Sender: FDA-Public Use
  Company Number: GB-ASPEN-GLO2018GB006044

PATIENT
  Age: 72 Year
  Sex: Female

DRUGS (3)
  1. LENALIDOMIDE [Suspect]
     Active Substance: LENALIDOMIDE
     Indication: PLASMA CELL MYELOMA
     Dosage: 15 MG, UNK
     Route: 065
  2. NINLARO [Suspect]
     Active Substance: IXAZOMIB CITRATE
     Indication: PLASMA CELL MYELOMA
     Dosage: UNK
     Route: 065
  3. DEXAMETHASONE. [Suspect]
     Active Substance: DEXAMETHASONE
     Indication: PLASMA CELL MYELOMA
     Dosage: UNK UNK, 1/WEEK
     Route: 065
     Dates: start: 20171114

REACTIONS (5)
  - Neutropenia [Unknown]
  - Bone lesion [Unknown]
  - Fatigue [Unknown]
  - Neuropathy peripheral [Unknown]
  - Plasma cell myeloma [Unknown]
